FAERS Safety Report 5658715-3 (Version None)
Quarter: 2008Q1

REPORT INFORMATION
  Report Type: 
  Country: None (occurrence: None)
  Receive Date: 20080310
  Receipt Date: 20070530
  Transmission Date: 20080703
  Serious: Yes (Other)
  Sender: FDA-Public Use
  Company Number: US-BAYER-200710993BCC

PATIENT
  Sex: Male
  Weight: 84 kg

DRUGS (10)
  1. ALEVE [Suspect]
     Indication: PAIN
     Dosage: UNIT DOSE: 220 MG
     Route: 048
  2. PRINIVIL (NOS) [Suspect]
     Indication: DRUG USE FOR UNKNOWN INDICATION
  3. XANAX [Concomitant]
  4. ASPIRIN [Concomitant]
     Route: 048
  5. TANORAL [Concomitant]
  6. LIPITOR [Concomitant]
  7. PROZAC [Concomitant]
  8. NEXIUM [Concomitant]
  9. NORVASC [Concomitant]
  10. AMBIEN [Concomitant]

REACTIONS (1)
  - RENAL IMPAIRMENT [None]
